FAERS Safety Report 25952897 (Version 1)
Quarter: 2025Q4

REPORT INFORMATION
  Report Type: Spontaneous
  Country: US (occurrence: None)
  Receive Date: 20251023
  Receipt Date: 20251023
  Transmission Date: 20260117
  Serious: Yes (Life-Threatening, Hospitalization)
  Sender: FDA-CTU
  Company Number: None

PATIENT
  Age: 33 Year
  Sex: Male
  Weight: 72 kg

DRUGS (1)
  1. HERBALS\MITRAGYNINE [Suspect]
     Active Substance: HERBALS\MITRAGYNINE
     Indication: Drug dependence
     Dates: start: 20231002, end: 20251023

REACTIONS (7)
  - Drug dependence [None]
  - Withdrawal syndrome [None]
  - Mood altered [None]
  - Anxiety [None]
  - Substance use [None]
  - Product use in unapproved indication [None]
  - Physical product label issue [None]

NARRATIVE: CASE EVENT DATE: 20251023
